FAERS Safety Report 8102435-2 (Version None)
Quarter: 2012Q1

REPORT INFORMATION
  Report Type: 
  Country: None (occurrence: None)
  Receive Date: 20120131
  Receipt Date: 20120131
  Transmission Date: 20120608
  Serious: No
  Sender: FDA-Public Use
  Company Number: None

PATIENT
  Sex: Female
  Weight: 80.2867 kg

DRUGS (2)
  1. AMLODIPINE [Suspect]
     Indication: HYPERTENSION
     Dosage: 10MG DAILY PO 047
     Route: 048
     Dates: start: 20111201
  2. AMLODIPINE [Suspect]
     Indication: HYPERTENSION
     Dosage: 10MG DAILY PO 047
     Route: 048
     Dates: start: 20090601

REACTIONS (4)
  - PRODUCT SUBSTITUTION ISSUE [None]
  - DIZZINESS [None]
  - OEDEMA PERIPHERAL [None]
  - COUGH [None]
